FAERS Safety Report 6754588-6 (Version None)
Quarter: 2010Q2

REPORT INFORMATION
  Report Type: 
  Country: None (occurrence: None)
  Receive Date: 20100603
  Receipt Date: 20100312
  Transmission Date: 20101027
  Serious: Yes (Hospitalization)
  Sender: FDA-Public Use
  Company Number: PHHY2010JP33239

PATIENT
  Sex: Male

DRUGS (12)
  1. DIOVAN [Suspect]
     Dosage: 80 MG ONCE DAILY
     Route: 048
     Dates: start: 20081023, end: 20081218
  2. DIOVAN [Suspect]
     Dosage: 80 MG ONCE DAILY
     Route: 048
     Dates: start: 20090521, end: 20091022
  3. LIPITOR [Suspect]
     Dosage: 10 MG DAILY
     Route: 048
     Dates: start: 20060428
  4. ADALAT [Concomitant]
     Indication: HYPERTENSION
     Dosage: 40 MG
     Route: 048
     Dates: start: 20061020
  5. MAINTATE [Concomitant]
     Indication: HYPERTENSION
     Dosage: 2.5MG
     Route: 048
     Dates: start: 20060428
  6. VASOLAN [Concomitant]
     Indication: HYPERTENSION
     Dosage: 120 MG
     Route: 048
     Dates: start: 20060428
  7. BEPRICOR [Concomitant]
     Dosage: 200MG
     Route: 048
     Dates: start: 20060428
  8. TAKEPRON [Concomitant]
     Dosage: 15MG
     Route: 048
     Dates: start: 20060623
  9. WARFARIN [Concomitant]
     Dosage: 2MG
     Route: 048
     Dates: start: 20060428
  10. DEPAS [Concomitant]
     Dosage: 1.5MG
     Route: 048
     Dates: start: 20060428
  11. BEZATOL - SLOW RELEASE [Concomitant]
     Dosage: 200MG
     Route: 048
     Dates: start: 20060428
  12. SENNOSIDE [Concomitant]
     Dosage: 24MG
     Route: 048
     Dates: start: 20090416

REACTIONS (2)
  - BLOOD CREATININE INCREASED [None]
  - RHABDOMYOLYSIS [None]
